FAERS Safety Report 22266392 (Version 1)
Quarter: 2023Q2

REPORT INFORMATION
  Report Type: Spontaneous
  Country: CH (occurrence: CH)
  Receive Date: 20230428
  Receipt Date: 20230428
  Transmission Date: 20230721
  Serious: Yes (Other)
  Sender: FDA-Public Use
  Company Number: CH-002147023-NVSC2021CH315370

PATIENT
  Sex: Female

DRUGS (1)
  1. PIQRAY [Suspect]
     Active Substance: ALPELISIB
     Indication: Uterine cancer
     Dosage: UNK
     Route: 065

REACTIONS (3)
  - Uterine cancer [Unknown]
  - Malignant neoplasm progression [Unknown]
  - Off label use [Unknown]
